FAERS Safety Report 21490142 (Version 2)
Quarter: 2022Q4

REPORT INFORMATION
  Report Type: Spontaneous
  Country: AU (occurrence: None)
  Receive Date: 20221021
  Receipt Date: 20221031
  Transmission Date: 20230112
  Serious: Yes (Other)
  Sender: FDA-Public Use
  Company Number: AU-ROCHE-3182394

PATIENT
  Sex: Male
  Weight: 64 kg

DRUGS (1)
  1. HERCEPTIN [Suspect]
     Active Substance: TRASTUZUMAB
     Indication: Metastatic salivary gland cancer
     Route: 065

REACTIONS (2)
  - Off label use [Unknown]
  - Metastatic salivary gland cancer [Unknown]
